FAERS Safety Report 11683760 (Version 2)
Quarter: 2017Q4

REPORT INFORMATION
  Report Type: Spontaneous
  Country: US (occurrence: US)
  Receive Date: 20151029
  Receipt Date: 20171122
  Transmission Date: 20180320
  Serious: No
  Sender: FDA-Public Use
  Company Number: US-ROCHE-1634201

PATIENT
  Sex: Female

DRUGS (4)
  1. HERCEPTIN [Suspect]
     Active Substance: TRASTUZUMAB
     Dosage: LAST DOSE ON 03/AUG/2015
     Route: 065
     Dates: start: 201505
  2. TAXOL [Suspect]
     Active Substance: PACLITAXEL
     Indication: BONE LESION
     Route: 065
  3. HERCEPTIN [Suspect]
     Active Substance: TRASTUZUMAB
     Indication: BREAST CANCER
     Route: 065
     Dates: start: 2013, end: 201503
  4. TAXOTERE [Suspect]
     Active Substance: DOCETAXEL
     Indication: BONE LESION
     Route: 065

REACTIONS (2)
  - Bone lesion [Recovered/Resolved]
  - Maternal exposure during pregnancy [Unknown]

NARRATIVE: CASE EVENT DATE: 2013
